FAERS Safety Report 17080069 (Version 1)
Quarter: 2019Q4

REPORT INFORMATION
  Report Type: Other
  Country: GB (occurrence: GB)
  Receive Date: 20191127
  Receipt Date: 20191127
  Transmission Date: 20200122
  Serious: Yes (Life-Threatening, Hospitalization)
  Sender: FDA-Public Use
  Company Number: GB-EMCURE PHARMACEUTICALS LTD-2019-EPL-1085

PATIENT
  Age: 22 Year
  Sex: Male

DRUGS (2)
  1. FLUOXETINE [Suspect]
     Active Substance: FLUOXETINE HYDROCHLORIDE
     Indication: DEPRESSION
     Dosage: 20 MILLIGRAM, QD
     Route: 048
  2. FLUOXETINE [Suspect]
     Active Substance: FLUOXETINE HYDROCHLORIDE
     Dosage: 40 MILLIGRAM, DAILY,INCREASED FROM 20MG ONCE A DAY
     Route: 048

REACTIONS (7)
  - Suicidal ideation [Recovering/Resolving]
  - Anxiety [Unknown]
  - Intentional overdose [Unknown]
  - Hallucination [Unknown]
  - Delusion [Unknown]
  - Social avoidant behaviour [Unknown]
  - Suicidal behaviour [Recovering/Resolving]
